FAERS Safety Report 4899380-2 (Version None)
Quarter: 2006Q1

REPORT INFORMATION
  Report Type: 
  Country: None (occurrence: None)
  Receive Date: 20060106
  Receipt Date: 20050815
  Transmission Date: 20060701
  Serious: No
  Sender: FDA-Public Use
  Company Number: 200511043BWH

PATIENT
  Age: 71 Year
  Sex: Male

DRUGS (8)
  1. LEVITRA [Suspect]
     Indication: ERECTILE DYSFUNCTION
     Dosage: 20 MG, PRN, ORAL
     Route: 048
  2. EYE DROPS [Concomitant]
  3. ASTHMA MEDICATION [Concomitant]
  4. PROTONIX [Concomitant]
  5. COSOPT [Concomitant]
  6. XALATAN [Concomitant]
  7. ALBUTEROL [Concomitant]
  8. HYDROCHLOROTHIAZIDE [Concomitant]

REACTIONS (1)
  - DRUG INEFFECTIVE [None]
